FAERS Safety Report 14626411 (Version 1)
Quarter: 2018Q1

REPORT INFORMATION
  Report Type: Spontaneous
  Country: US (occurrence: US)
  Receive Date: 20180312
  Receipt Date: 20180312
  Transmission Date: 20180509
  Serious: No
  Sender: FDA-Public Use
  Company Number: US-BAYER-2018-044894

PATIENT
  Age: 63 Year
  Sex: Female

DRUGS (1)
  1. MIRALAX [Suspect]
     Active Substance: POLYETHYLENE GLYCOL 3350
     Indication: CONSTIPATION
     Dosage: UNK
     Route: 065

REACTIONS (5)
  - Inappropriate schedule of drug administration [Unknown]
  - Product use in unapproved indication [Unknown]
  - Faeces soft [Unknown]
  - Abnormal faeces [Unknown]
  - Bowel movement irregularity [Unknown]

NARRATIVE: CASE EVENT DATE: 2017
